FAERS Safety Report 13675284 (Version 3)
Quarter: 2018Q4

REPORT INFORMATION
  Report Type: Spontaneous
  Country: JP (occurrence: JP)
  Receive Date: 20170621
  Receipt Date: 20181219
  Transmission Date: 20190204
  Serious: Yes (Life-Threatening, Hospitalization)
  Sender: FDA-Public Use
  Company Number: JP-ELI_LILLY_AND_COMPANY-JP201706008522

PATIENT
  Age: 88 Year
  Sex: Female

DRUGS (3)
  1. ERBITUX [Suspect]
     Active Substance: CETUXIMAB
     Indication: MALIGNANT PALATE NEOPLASM
     Dosage: 400 MG/M2, UNKNOWN
     Route: 041
     Dates: start: 20170612, end: 20170612
  2. CROTAMITON [Concomitant]
     Active Substance: CROTAMITON
     Indication: PREMEDICATION
     Dosage: 10 MG, UNKNOWN
     Route: 041
     Dates: start: 20170612, end: 20170612
  3. DECADRON [Concomitant]
     Active Substance: DEXAMETHASONE
     Indication: PREMEDICATION
     Dosage: 2 ML, UNKNOWN
     Route: 041
     Dates: start: 20170612, end: 20170612

REACTIONS (2)
  - Infusion related reaction [Recovered/Resolved]
  - Cardio-respiratory arrest [Recovered/Resolved]

NARRATIVE: CASE EVENT DATE: 2017
